FAERS Safety Report 8770478 (Version 4)
Quarter: 2012Q4

REPORT INFORMATION
  Report Type: 
  Country: DE (occurrence: DE)
  Receive Date: 20120906
  Receipt Date: 20121121
  Transmission Date: 20130627
  Serious: Yes (Hospitalization)
  Sender: FDA-Public Use
  Company Number: DE-FRI-1000038324

PATIENT
  Age: 86 Year
  Sex: Female

DRUGS (8)
  1. MEMANTINE [Suspect]
     Indication: DEMENTIA
     Dosage: 20 mg
     Route: 048
     Dates: start: 201206, end: 201208
  2. RAMIPRIL [Concomitant]
     Dosage: 5 mg
  3. AMLODIPINE [Concomitant]
     Dosage: 20 mg
  4. TORASEMIDE [Concomitant]
     Dosage: 2.5 mg
  5. ACETYLSALICYLIC ACID [Concomitant]
     Dosage: 100 mg
  6. ZOPICLONE [Concomitant]
     Dosage: 7.5 mg
  7. RISPERIDONE [Concomitant]
     Dosage: 0.5  mg
  8. SIMVASTATIN [Concomitant]
     Dosage: 40 mg

REACTIONS (5)
  - Atrioventricular block second degree [Recovered/Resolved]
  - Bundle branch block right [Recovered/Resolved]
  - Pneumonia [Unknown]
  - Cardiac failure [Unknown]
  - Restlessness [Unknown]
